FAERS Safety Report 18061631 (Version 1)
Quarter: 2020Q3

REPORT INFORMATION
  Report Type: Spontaneous
  Country: US (occurrence: US)
  Receive Date: 20200723
  Receipt Date: 20200723
  Transmission Date: 20201103
  Serious: No
  Sender: FDA-Public Use
  Company Number: US-009507513-2007USA007286

PATIENT
  Age: 30 Year
  Sex: Female

DRUGS (3)
  1. LUPRON [Concomitant]
     Active Substance: LEUPROLIDE ACETATE
     Dosage: UNK
  2. MENOPUR [Concomitant]
     Active Substance: FOLLITROPIN\LUTEINIZING HORMONE
     Dosage: UNK
  3. FOLLISTIM AQ [Suspect]
     Active Substance: FOLLITROPIN
     Indication: PREGNANCY
     Dosage: 125 UNITS FOR 10 DAYS
     Dates: start: 201907, end: 201907

REACTIONS (1)
  - Failed in vitro fertilisation [Recovered/Resolved]

NARRATIVE: CASE EVENT DATE: 201912
